FAERS Safety Report 9391036 (Version 1)
Quarter: 2013Q3

REPORT INFORMATION
  Report Type: Spontaneous
  Country: US (occurrence: None)
  Receive Date: 20130705
  Receipt Date: 20130705
  Transmission Date: 20140515
  Serious: Yes (Other)
  Sender: FDA-Public Use
  Company Number: None

PATIENT
  Age: 60 Year
  Sex: Female
  Weight: 96.16 kg

DRUGS (1)
  1. ALTEPLASE [Suspect]

REACTIONS (1)
  - Angioedema [None]
